FAERS Safety Report 17655051 (Version 1)
Quarter: 2020Q2

REPORT INFORMATION
  Report Type: Spontaneous
  Country: US (occurrence: US)
  Receive Date: 20200409
  Receipt Date: 20200409
  Transmission Date: 20200713
  Serious: Yes (Other)
  Sender: FDA-Public Use
  Company Number: None

PATIENT
  Age: 65 Year
  Sex: Female
  Weight: 132.3 kg

DRUGS (18)
  1. TRIAM/HCTZ [Concomitant]
     Active Substance: HYDROCHLOROTHIAZIDE\TRIAMTERENE
  2. SUPER B COMPLEX [Concomitant]
     Active Substance: CYANOCOBALAMIN\DEXPANTHENOL\NIACINAMIDE\PYRIDOXINE HYDROCHLORIDE\RIBOFLAVIN 5^-PHOSPHATE SODIUM\THIAMINE HYDROCHLORIDE\VITAMIN B COMPLEX
  3. COQ10 [Concomitant]
     Active Substance: UBIDECARENONE
  4. PRAVASTATIN SODIUM. [Concomitant]
     Active Substance: PRAVASTATIN SODIUM
  5. FEXOFENADINE HCL [Concomitant]
     Active Substance: FEXOFENADINE HYDROCHLORIDE
  6. TUMERIC [Concomitant]
     Active Substance: HERBALS\TURMERIC
  7. METOPROLOL ER 25MG TAB [Suspect]
     Active Substance: METOPROLOL SUCCINATE
     Indication: HYPERTENSION
     Route: 048
     Dates: start: 20200305, end: 20200328
  8. ACT NASAL SUSPENSION [Concomitant]
  9. AMLODIPINE [Suspect]
     Active Substance: AMLODIPINE BESYLATE
  10. FLUTICASONE PRPIONATE [Concomitant]
  11. MEDICAL CANNABIS [Concomitant]
     Active Substance: CANNABIS SATIVA SUBSP. INDICA TOP
  12. ATORVASTATIN CALCIUM TABLETS [Concomitant]
     Active Substance: ATORVASTATIN CALCIUM
  13. GAVISCON-EXTRA STRENGTH [Concomitant]
  14. VITAMIN D3 [Concomitant]
     Active Substance: CHOLECALCIFEROL
  15. CENTRUM SILVER [Concomitant]
     Active Substance: MINERALS\VITAMINS
  16. FISH OIL [Concomitant]
     Active Substance: FISH OIL
  17. HAIR, SKIN, NAILS W/BIOTIN [Concomitant]
  18. BAYER LOW DOSE [Concomitant]
     Active Substance: ASPIRIN

REACTIONS (2)
  - Ear infection [None]
  - Pharyngitis streptococcal [None]

NARRATIVE: CASE EVENT DATE: 20200305
